FAERS Safety Report 19490199 (Version 2)
Quarter: 2021Q3

REPORT INFORMATION
  Report Type: Spontaneous
  Country: JP (occurrence: JP)
  Receive Date: 20210705
  Receipt Date: 20210802
  Transmission Date: 20211014
  Serious: Yes (Hospitalization, Other)
  Sender: FDA-Public Use
  Company Number: JP-TEVA-2021-JP-1928656

PATIENT
  Age: 8 Decade
  Sex: Male
  Weight: 53.9 kg

DRUGS (14)
  1. CARBOPLATIN. [Suspect]
     Active Substance: CARBOPLATIN
     Indication: LUNG ADENOCARCINOMA STAGE IV
     Dosage: THIRD LINE THERAPY WITH PEMETREXED
     Route: 065
     Dates: start: 201706
  2. BUCILLAMINE [Concomitant]
     Active Substance: BUCILLAMINE
     Indication: PRODUCT USED FOR UNKNOWN INDICATION
     Route: 048
  3. PEMETREXED. [Concomitant]
     Active Substance: PEMETREXED
     Indication: LUNG ADENOCARCINOMA STAGE IV
     Dosage: THIRD LINE THERAPY WITH CARBOPLATIN
     Route: 065
     Dates: start: 201706
  4. CARBOPLATIN. [Suspect]
     Active Substance: CARBOPLATIN
     Indication: LUNG ADENOCARCINOMA STAGE IV
     Dosage: FIVE CYCLES; FIRST LINE THERAPY
     Route: 065
     Dates: start: 201607
  5. NIVOLUMAB [Suspect]
     Active Substance: NIVOLUMAB
     Indication: LUNG ADENOCARCINOMA STAGE IV
     Route: 065
     Dates: start: 201802
  6. CARBOCISTEINE [Concomitant]
     Active Substance: CARBOCYSTEINE
     Indication: PRODUCT USED FOR UNKNOWN INDICATION
     Route: 048
  7. ETIZOLAM [Concomitant]
     Active Substance: ETIZOLAM
     Indication: PRODUCT USED FOR UNKNOWN INDICATION
     Route: 048
  8. NAB PACLITAXEL [Suspect]
     Active Substance: PACLITAXEL
     Indication: LUNG ADENOCARCINOMA STAGE IV
     Dosage: FIVE CYCLES; FIRST LINE THERAPY
     Route: 065
     Dates: start: 201607
  9. CILOSTAZOL. [Concomitant]
     Active Substance: CILOSTAZOL
     Indication: PRODUCT USED FOR UNKNOWN INDICATION
     Route: 048
  10. TAMSULOSIN [Concomitant]
     Active Substance: TAMSULOSIN
     Indication: PRODUCT USED FOR UNKNOWN INDICATION
     Route: 048
  11. PREDNISOLONE. [Concomitant]
     Active Substance: PREDNISOLONE
     Indication: PRODUCT USED FOR UNKNOWN INDICATION
     Route: 048
  12. DEXTROMETHORPHAN [Concomitant]
     Active Substance: DEXTROMETHORPHAN
     Indication: PRODUCT USED FOR UNKNOWN INDICATION
     Route: 048
  13. BETAMETHASONE. [Concomitant]
     Active Substance: BETAMETHASONE
     Indication: PRODUCT USED FOR UNKNOWN INDICATION
     Route: 048
  14. RAMELTEON [Concomitant]
     Active Substance: RAMELTEON
     Indication: PRODUCT USED FOR UNKNOWN INDICATION
     Route: 048

REACTIONS (3)
  - Dysaesthesia [Unknown]
  - Cytopenia [Unknown]
  - Demyelinating polyneuropathy [Recovered/Resolved]

NARRATIVE: CASE EVENT DATE: 2018
